FAERS Safety Report 9744880 (Version 1)
Quarter: 2013Q4

REPORT INFORMATION
  Report Type: Spontaneous
  Country: DE (occurrence: DE)
  Receive Date: 20131211
  Receipt Date: 20131211
  Transmission Date: 20140711
  Serious: Yes (Other)
  Sender: FDA-Public Use
  Company Number: DE-ROCHE-1316409

PATIENT
  Sex: Male

DRUGS (2)
  1. LUCENTIS [Suspect]
     Indication: CYSTOID MACULAR OEDEMA
     Route: 050
  2. LUCENTIS [Suspect]
     Route: 065
     Dates: start: 20131202

REACTIONS (5)
  - Macular oedema [Unknown]
  - Visual acuity reduced [Unknown]
  - Underdose [Unknown]
  - Multiple use of single-use product [Unknown]
  - Off label use [Unknown]
